FAERS Safety Report 20504471 (Version 2)
Quarter: 2022Q1

REPORT INFORMATION
  Report Type: Spontaneous
  Country: JP (occurrence: JP)
  Receive Date: 20220223
  Receipt Date: 20220310
  Transmission Date: 20220424
  Serious: Yes (Other)
  Sender: FDA-Public Use
  Company Number: JP-JNJFOC-A-CH2018-176664

PATIENT
  Age: 39 Year
  Sex: Female

DRUGS (10)
  1. EPOPROSTENOL SODIUM [Suspect]
     Active Substance: EPOPROSTENOL SODIUM
     Indication: Pulmonary arterial hypertension
     Route: 042
  2. OPSUMIT [Concomitant]
     Active Substance: MACITENTAN
     Route: 048
  3. OXYGEN [Concomitant]
     Active Substance: OXYGEN
     Route: 055
  4. NITRIC OXIDE [Concomitant]
     Active Substance: NITRIC OXIDE
     Route: 055
  5. TADALAFIL [Concomitant]
     Active Substance: TADALAFIL
     Route: 048
  6. RIOCIGUAT [Concomitant]
     Active Substance: RIOCIGUAT
     Route: 048
  7. FUROSEMIDE [Concomitant]
     Active Substance: FUROSEMIDE
  8. TRICHLORMETHIAZIDE [Concomitant]
     Active Substance: TRICHLORMETHIAZIDE
  9. SPIRONOLACTONE [Concomitant]
     Active Substance: SPIRONOLACTONE
     Route: 048
  10. TOLVAPTAN [Concomitant]
     Active Substance: TOLVAPTAN
     Route: 048

REACTIONS (3)
  - Colon cancer [Unknown]
  - Colectomy [Unknown]
  - Diarrhoea [Unknown]
